FAERS Safety Report 25593389 (Version 1)
Quarter: 2025Q3

REPORT INFORMATION
  Report Type: Spontaneous
  Country: US (occurrence: US)
  Receive Date: 20250722
  Receipt Date: 20250722
  Transmission Date: 20251021
  Serious: Yes (Other)
  Sender: ALEXION PHARMACEUTICALS
  Company Number: US-ASTRAZENECA-202507GLO012426US

PATIENT
  Age: 66 Year
  Sex: Female

DRUGS (9)
  1. NEXIUM [Suspect]
     Active Substance: ESOMEPRAZOLE MAGNESIUM
     Route: 065
  2. NORVASC [Concomitant]
     Active Substance: AMLODIPINE BESYLATE
  3. MICROZIDE [Concomitant]
     Active Substance: HYDROCHLOROTHIAZIDE
  4. LEVALBUTEROL [Concomitant]
     Active Substance: LEVALBUTEROL
  5. LORATADINE [Concomitant]
     Active Substance: LORATADINE
  6. ZOLPIDEM [Concomitant]
     Active Substance: ZOLPIDEM TARTRATE
  7. METHOCARBAMOL [Concomitant]
     Active Substance: METHOCARBAMOL
  8. METOPROLOL TARTRATE [Concomitant]
     Active Substance: METOPROLOL TARTRATE
  9. OMEPRAZOLE [Concomitant]
     Active Substance: OMEPRAZOLE

REACTIONS (2)
  - Gastric cancer [Unknown]
  - Adenocarcinoma gastric [Unknown]

NARRATIVE: CASE EVENT DATE: 20230924
